FAERS Safety Report 5661814-3 (Version None)
Quarter: 2008Q1

REPORT INFORMATION
  Report Type: 
  Country: None (occurrence: None)
  Receive Date: 20080229
  Receipt Date: 20080219
  Transmission Date: 20080703
  Serious: Yes (Other)
  Sender: FDA-Public Use
  Company Number: A0711436A

PATIENT
  Age: 10 Year
  Sex: Female

DRUGS (2)
  1. SODIUM FLUORIDE (FORMULATION UNKNOWN) (SODIUM FLUORIDE) [Suspect]
     Indication: DRUG USE FOR UNKNOWN INDICATION
  2. MULTI-VITAMIN [Suspect]

REACTIONS (2)
  - DRUG TOXICITY [None]
  - NAUSEA [None]
